FAERS Safety Report 12262460 (Version 1)
Quarter: 2016Q2

REPORT INFORMATION
  Report Type: Report from Study
  Country: JP (occurrence: JP)
  Receive Date: 20160413
  Receipt Date: 20160413
  Transmission Date: 20160815
  Serious: Yes (Other)
  Sender: FDA-Public Use
  Company Number: JP-BEH-2016061258

PATIENT
  Age: 35 Year
  Sex: Female
  Weight: 45.9 kg

DRUGS (7)
  1. TRANEXAMIC ACID. [Concomitant]
     Active Substance: TRANEXAMIC ACID
     Route: 048
     Dates: start: 20141008, end: 20141015
  2. CRAVIT [Concomitant]
     Active Substance: LEVOFLOXACIN
     Route: 048
     Dates: start: 20141008, end: 20141015
  3. CLARITH [Concomitant]
     Active Substance: CLARITHROMYCIN
     Route: 048
  4. BAKTAR [Concomitant]
     Active Substance: SULFAMETHOXAZOLE\TRIMETHOPRIM
     Route: 048
  5. HIZENTRA [Suspect]
     Active Substance: HUMAN IMMUNOGLOBULIN G
     Indication: IMMUNODEFICIENCY COMMON VARIABLE
     Route: 058
     Dates: start: 20140716, end: 20150112
  6. CLARITIN [Concomitant]
     Active Substance: LORATADINE
     Route: 048
  7. MUCODYNE [Concomitant]
     Active Substance: CARBOCYSTEINE
     Route: 048

REACTIONS (2)
  - Respiratory tract infection [Recovered/Resolved]
  - Oral herpes [Recovered/Resolved]

NARRATIVE: CASE EVENT DATE: 20141006
